FAERS Safety Report 25780355 (Version 1)
Quarter: 2025Q3

REPORT INFORMATION
  Report Type: Spontaneous
  Country: US (occurrence: US)
  Receive Date: 20250909
  Receipt Date: 20250909
  Transmission Date: 20251021
  Serious: No
  Sender: SANOFI AVENTIS
  Company Number: US-SA-2025SA266021

PATIENT
  Age: 59 Year
  Sex: Female

DRUGS (29)
  1. DUPIXENT [Suspect]
     Active Substance: DUPILUMAB
     Indication: Dermatitis atopic
     Dosage: 300 MG, QOW
     Route: 058
     Dates: start: 20200616
  2. DUPIXENT [Suspect]
     Active Substance: DUPILUMAB
     Dosage: 300 MG, Q3W
     Route: 058
     Dates: start: 20250616
  3. DEXAMETHASONE [Concomitant]
     Active Substance: DEXAMETHASONE
  4. TRIAMCINOLONE [Concomitant]
     Active Substance: TRIAMCINOLONE
  5. TUKYSA [Concomitant]
     Active Substance: TUCATINIB
  6. PERJETA [Concomitant]
     Active Substance: PERTUZUMAB
  7. CLOBETASOL [Concomitant]
     Active Substance: CLOBETASOL
  8. VITAMIN D3 [Concomitant]
     Active Substance: CHOLECALCIFEROL
  9. ZOLEDRONIC ACID [Concomitant]
     Active Substance: ZOLEDRONIC ACID
  10. ESTRING [Concomitant]
     Active Substance: ESTRADIOL
  11. PROTOPIC [Concomitant]
     Active Substance: TACROLIMUS
  12. COENZYME Q10 [Concomitant]
     Active Substance: DIETARY SUPPLEMENT\UBIDECARENONE
  13. HERCEPTIN [Concomitant]
     Active Substance: TRASTUZUMAB
  14. VITAMIN B COMPLEX [Concomitant]
     Active Substance: CYANOCOBALAMIN\DEXPANTHENOL\NIACINAMIDE\PYRIDOXINE HYDROCHLORIDE\RIBOFLAVIN 5^-PHOSPHATE SODIUM\THIA
  15. DILAUDID [Concomitant]
     Active Substance: HYDROMORPHONE HYDROCHLORIDE
  16. VALTREX [Concomitant]
     Active Substance: VALACYCLOVIR HYDROCHLORIDE
  17. JOINT HEALTH [Concomitant]
     Active Substance: AMINO ACIDS\BARLEY MALT
  18. MONTELUKAST [Concomitant]
     Active Substance: MONTELUKAST
  19. TACROLIMUS [Concomitant]
     Active Substance: TACROLIMUS
  20. FAMOTIDINE [Concomitant]
     Active Substance: FAMOTIDINE
  21. TAMOXIFEN [Concomitant]
     Active Substance: TAMOXIFEN
  22. NYSTATIN [Concomitant]
     Active Substance: NYSTATIN
  23. FLUTICASONE [Concomitant]
     Active Substance: FLUTICASONE
  24. CETIRIZINE [Concomitant]
     Active Substance: CETIRIZINE HYDROCHLORIDE
  25. CYCLOBENZAPRINE [Concomitant]
     Active Substance: CYCLOBENZAPRINE
  26. LORATADINE [Concomitant]
     Active Substance: LORATADINE
  27. ZANTAC [Concomitant]
     Active Substance: RANITIDINE HYDROCHLORIDE
  28. GABAPENTIN [Concomitant]
     Active Substance: GABAPENTIN
  29. CALCIUM [Concomitant]
     Active Substance: CALCIUM

REACTIONS (1)
  - Inappropriate schedule of product administration [Unknown]

NARRATIVE: CASE EVENT DATE: 20250903
